FAERS Safety Report 16725337 (Version 1)
Quarter: 2019Q3

REPORT INFORMATION
  Report Type: Spontaneous
  Country: BE (occurrence: BE)
  Receive Date: 20190821
  Receipt Date: 20190821
  Transmission Date: 20191005
  Serious: Yes (Hospitalization, Disabling)
  Sender: FDA-Public Use
  Company Number: BE-MYLANLABS-2019M1077828

PATIENT
  Sex: Female
  Weight: 60 kg

DRUGS (10)
  1. PRAZEPAM [Concomitant]
     Active Substance: PRAZEPAM
     Dosage: UNK
     Route: 048
     Dates: start: 2015, end: 2015
  2. ACETYLSALICYLIC ACID [Concomitant]
     Active Substance: ASPIRIN
     Dosage: 160 MILLIGRAM, QD
     Route: 048
     Dates: start: 200508
  3. BELSAR                             /01635402/ [Suspect]
     Active Substance: OLMESARTAN MEDOXOMIL
     Indication: HYPERTENSION
     Dosage: 40 MILLIGRAM, QD
     Route: 048
     Dates: start: 20171031
  4. ESTRADIOL. [Concomitant]
     Active Substance: ESTRADIOL
     Dosage: UNK
     Route: 003
     Dates: start: 2004
  5. BISOPROLOL [Suspect]
     Active Substance: BISOPROLOL
     Indication: HYPERTENSION
     Dosage: 5 MILLIGRAM, QD
     Route: 048
     Dates: start: 200508
  6. COLECALCIFEROL [Concomitant]
     Active Substance: CHOLECALCIFEROL
     Dosage: UNK
     Route: 048
  7. OMEPRAZOLE. [Concomitant]
     Active Substance: OMEPRAZOLE
     Dosage: 20 MILLIGRAM, QD
     Route: 048
     Dates: start: 2004
  8. ROSUVASTATIN CALCIUM. [Concomitant]
     Active Substance: ROSUVASTATIN CALCIUM
     Dosage: 10 MILLIGRAM, QD
     Route: 048
     Dates: start: 200508
  9. PARACETAMOL [Concomitant]
     Active Substance: ACETAMINOPHEN
     Dosage: 3 GRAM, QD
     Route: 048
  10. PROGESTERONE. [Concomitant]
     Active Substance: PROGESTERONE
     Dosage: 100 MILLIGRAM, QD
     Route: 048
     Dates: start: 2004

REACTIONS (18)
  - Goitre [Recovered/Resolved]
  - Paraesthesia [Recovered/Resolved]
  - Fatigue [Recovered/Resolved]
  - Vision blurred [Recovered/Resolved]
  - Drug ineffective [Recovered/Resolved]
  - Asphyxia [Recovered/Resolved]
  - Vertigo [Recovered/Resolved]
  - Arthralgia [Recovered/Resolved]
  - Tongue erythema [Recovered/Resolved]
  - Myalgia [Recovered/Resolved]
  - Chest pain [Recovered/Resolved]
  - Headache [Recovered/Resolved]
  - Dizziness [Recovered/Resolved]
  - Nausea [Recovered/Resolved]
  - Hot flush [Recovered/Resolved]
  - Decreased appetite [Recovered/Resolved]
  - Presyncope [Recovered/Resolved]
  - Alopecia [Recovered/Resolved]

NARRATIVE: CASE EVENT DATE: 20171031
